FAERS Safety Report 5422582-3 (Version None)
Quarter: 2007Q3

REPORT INFORMATION
  Report Type: 
  Country: None (occurrence: None)
  Receive Date: 20070822
  Receipt Date: 20070627
  Transmission Date: 20080115
  Serious: Yes (Other)
  Sender: FDA-Public Use
  Company Number: US-PURDUE-USA_2007_0028168

PATIENT
  Sex: Female

DRUGS (2)
  1. OXYCONTIN [Suspect]
     Indication: BACK PAIN
     Dosage: 20 MG, Q12H
     Dates: start: 20000406, end: 20000706
  2. VICODIN [Concomitant]
     Dosage: 500 MG, UNK

REACTIONS (5)
  - CARDIAC DISORDER [None]
  - GASTROINTESTINAL DISORDER [None]
  - INTESTINAL OPERATION [None]
  - PAIN [None]
  - PANIC ATTACK [None]
